FAERS Safety Report 8154837-6 (Version None)
Quarter: 2012Q1

REPORT INFORMATION
  Report Type: 
  Country: None (occurrence: None)
  Receive Date: 20120221
  Receipt Date: 20120213
  Transmission Date: 20120608
  Serious: Yes (Other)
  Sender: FDA-Public Use
  Company Number: PHHY2012CN010974

PATIENT
  Age: 68 Year
  Sex: Male

DRUGS (2)
  1. VOLTAREN-XR [Suspect]
     Dosage: 1 DF, DAILY
     Dates: start: 20111101
  2. TARCEVA [Concomitant]
     Dosage: UNK UKN, QD

REACTIONS (6)
  - MUSCULAR WEAKNESS [None]
  - FATIGUE [None]
  - CARDIAC FAILURE [None]
  - CHEST DISCOMFORT [None]
  - DYSPNOEA [None]
  - THROMBOSIS [None]
